FAERS Safety Report 6662229-1 (Version None)
Quarter: 2010Q1

REPORT INFORMATION
  Report Type: 
  Country: None (occurrence: None)
  Receive Date: 20100331
  Receipt Date: 20100323
  Transmission Date: 20100710
  Serious: Yes (Hospitalization)
  Sender: FDA-Public Use
  Company Number: GXKR2010DK01892

PATIENT
  Sex: Male

DRUGS (2)
  1. DICLOFENAC (NGX) [Suspect]
     Indication: PAIN
     Dosage: 50 MG, TID
     Route: 065
     Dates: start: 20080519, end: 20080716
  2. ANTIBIOTICS [Concomitant]
     Indication: WOUND TREATMENT
     Route: 065

REACTIONS (4)
  - ABDOMINAL HERNIA [None]
  - GASTRIC ULCER PERFORATION [None]
  - JOINT STIFFNESS [None]
  - PAIN [None]
